FAERS Safety Report 17427418 (Version 1)
Quarter: 2020Q1

REPORT INFORMATION
  Report Type: Spontaneous
  Country: US (occurrence: US)
  Receive Date: 20200131
  Receipt Date: 20200131
  Transmission Date: 20200409
  Serious: Yes (Death)
  Sender: FDA-Public Use
  Company Number: None

PATIENT
  Age: 71 Year
  Sex: Male

DRUGS (1)
  1. REVLIMID [Suspect]
     Active Substance: LENALIDOMIDE
     Indication: PLASMA CELL MYELOMA
     Route: 048
     Dates: start: 20140902

REACTIONS (10)
  - Febrile neutropenia [None]
  - Fluid overload [None]
  - Renal impairment [None]
  - Urine output decreased [None]
  - Anaemia [None]
  - Colitis [None]
  - Hepatic function abnormal [None]
  - Candida infection [None]
  - Renal failure [None]
  - Supraventricular tachycardia [None]

NARRATIVE: CASE EVENT DATE: 20190812
